FAERS Safety Report 7312281-5 (Version None)
Quarter: 2011Q1

REPORT INFORMATION
  Report Type: 
  Country: None (occurrence: None)
  Receive Date: 20110224
  Receipt Date: 20110216
  Transmission Date: 20110831
  Serious: Yes (Death)
  Sender: FDA-Public Use
  Company Number: B0696196A

PATIENT
  Age: 66 Year
  Sex: Female
  Weight: 61 kg

DRUGS (19)
  1. CYMERIN [Suspect]
     Indication: STEM CELL TRANSPLANT
     Dosage: 410MG PER DAY
     Route: 042
     Dates: start: 20090403, end: 20090403
  2. CYLOCIDE [Suspect]
     Indication: STEM CELL TRANSPLANT
     Dosage: 540MG PER DAY
     Route: 042
     Dates: start: 20090404, end: 20090407
  3. GASTER D [Concomitant]
     Dosage: 40MG PER DAY
     Route: 048
     Dates: start: 20090401, end: 20090410
  4. MEROPEN [Concomitant]
     Dosage: 2G PER DAY
     Route: 042
     Dates: start: 20090416, end: 20090416
  5. IMMUNE GLOBULIN INTRAVENOUS (HUMAN) [Concomitant]
     Dosage: 5G PER DAY
     Route: 042
     Dates: start: 20090416, end: 20090416
  6. NEUTROGIN [Concomitant]
     Dates: start: 20090413, end: 20090416
  7. BROCIN [Concomitant]
     Dosage: 9ML PER DAY
     Route: 048
     Dates: start: 20090405, end: 20090406
  8. ACICLOVIR [Concomitant]
     Dosage: 500MG PER DAY
     Route: 042
     Dates: start: 20090415, end: 20090417
  9. FLUCONAMERCK [Concomitant]
     Dosage: 200MG PER DAY
     Route: 048
     Dates: start: 20090403, end: 20090415
  10. RESPLEN [Concomitant]
     Dosage: 60MG PER DAY
     Route: 048
     Dates: start: 20090404, end: 20090405
  11. ALBUMIN (HUMAN) [Concomitant]
     Dosage: 50ML PER DAY
     Route: 042
     Dates: start: 20090416, end: 20090416
  12. MIRACLID [Concomitant]
     Dosage: 100IU3 PER DAY
     Route: 042
     Dates: start: 20090417, end: 20090417
  13. ALKERAN [Suspect]
     Indication: STEM CELL TRANSPLANT
     Dosage: 140MGM2 PER DAY
     Route: 042
     Dates: start: 20090408, end: 20090408
  14. FLUCONARL [Concomitant]
     Dosage: 200MG PER DAY
     Route: 042
     Dates: start: 20090416, end: 20090416
  15. ETOPOSIDE [Suspect]
     Indication: STEM CELL TRANSPLANT
     Dosage: 270MG PER DAY
     Route: 042
     Dates: start: 20090404, end: 20090407
  16. HUSCODE [Concomitant]
     Dosage: 10ML PER DAY
     Route: 048
     Dates: start: 20090406
  17. CEFTAZIDIME [Concomitant]
     Dosage: 3G PER DAY
     Route: 042
     Dates: start: 20090412, end: 20090416
  18. CIPROFLOXACIN HCL [Concomitant]
     Dosage: 600MG PER DAY
     Route: 048
     Dates: start: 20090403, end: 20090415
  19. MUCODYNE [Concomitant]
     Dosage: 15ML PER DAY
     Route: 048
     Dates: start: 20090406

REACTIONS (1)
  - SEPSIS [None]
